FAERS Safety Report 12818602 (Version 3)
Quarter: 2016Q4

REPORT INFORMATION
  Report Type: Report from Study
  Country: US (occurrence: US)
  Receive Date: 20161006
  Receipt Date: 20161014
  Transmission Date: 20170207
  Serious: Yes (Other)
  Sender: FDA-Public Use
  Company Number: PHEH2016US025470

PATIENT
  Age: 47 Year
  Sex: Female
  Weight: 81.63 kg

DRUGS (1)
  1. GILENYA [Suspect]
     Active Substance: FINGOLIMOD HYDROCHLORIDE
     Indication: RELAPSING-REMITTING MULTIPLE SCLEROSIS
     Dosage: 0.5 MG, QD
     Route: 048
     Dates: start: 20160930

REACTIONS (8)
  - Erythema [Recovering/Resolving]
  - Ventricular extrasystoles [Unknown]
  - Palpitations [Unknown]
  - Blood pressure increased [Recovering/Resolving]
  - Concomitant disease aggravated [Unknown]
  - Hypoaesthesia oral [Recovering/Resolving]
  - Pruritus [Recovering/Resolving]
  - Flushing [Unknown]

NARRATIVE: CASE EVENT DATE: 20160930
